FAERS Safety Report 11953923 (Version 1)
Quarter: 2016Q1

REPORT INFORMATION
  Report Type: Spontaneous
  Country: US (occurrence: US)
  Receive Date: 20160126
  Receipt Date: 20160126
  Transmission Date: 20160526
  Serious: Yes (Hospitalization)
  Sender: FDA-Public Use
  Company Number: US-TEVA-627926USA

PATIENT
  Age: 62 Year
  Sex: Male
  Weight: 82.63 kg

DRUGS (13)
  1. COQ10 [Suspect]
     Active Substance: UBIDECARENONE
     Dosage: 400 MILLIGRAM DAILY;
     Route: 048
     Dates: start: 20151104
  2. PRAVASTATIN [Suspect]
     Active Substance: PRAVASTATIN\PRAVASTATIN SODIUM
     Indication: LIPIDS INCREASED
     Dates: start: 2013
  3. CARDIZEM [Concomitant]
     Active Substance: DILTIAZEM HYDROCHLORIDE
     Indication: BLOOD PRESSURE MEASUREMENT
     Dosage: 240 MILLIGRAM DAILY;
  4. LISINOPRIL AND HYDROCHLOROTHIAZIDE [Concomitant]
     Active Substance: HYDROCHLOROTHIAZIDE\LISINOPRIL
     Indication: BLOOD PRESSURE MEASUREMENT
     Dosage: 20 MG/12.5MG
     Route: 048
  5. PRAVASTATIN [Suspect]
     Active Substance: PRAVASTATIN\PRAVASTATIN SODIUM
     Indication: HIGH DENSITY LIPOPROTEIN DECREASED
  6. POTASSIUM [Concomitant]
     Active Substance: POTASSIUM
     Indication: BLOOD POTASSIUM DECREASED
     Dosage: 400 MILLIGRAM DAILY;
  7. XANAX [Concomitant]
     Active Substance: ALPRAZOLAM
     Indication: ANXIETY
     Dosage: 1-3 TIMES A DAY AS NEEDED
  8. XANAX [Concomitant]
     Active Substance: ALPRAZOLAM
     Indication: PANIC ATTACK
  9. MAGNESIUM [Concomitant]
     Active Substance: MAGNESIUM
     Indication: BLOOD MAGNESIUM DECREASED
     Dosage: 200 MILLIGRAM DAILY;
  10. PRAVASTATIN [Suspect]
     Active Substance: PRAVASTATIN\PRAVASTATIN SODIUM
     Indication: BLOOD TRIGLYCERIDES INCREASED
  11. LIPITOR [Interacting]
     Active Substance: ATORVASTATIN CALCIUM
     Indication: LIPIDS INCREASED
     Dosage: 30 MILLIGRAM DAILY;
     Route: 048
     Dates: start: 20151104
  12. LIPITOR [Interacting]
     Active Substance: ATORVASTATIN CALCIUM
     Indication: BLOOD TRIGLYCERIDES INCREASED
  13. LIPITOR [Interacting]
     Active Substance: ATORVASTATIN CALCIUM
     Indication: HIGH DENSITY LIPOPROTEIN DECREASED

REACTIONS (11)
  - Musculoskeletal discomfort [Unknown]
  - Diabetic neuropathy [Not Recovered/Not Resolved]
  - Pain in extremity [Recovered/Resolved]
  - Carpal tunnel syndrome [Recovered/Resolved]
  - Paraesthesia oral [Recovered/Resolved]
  - Burning sensation [Recovered/Resolved]
  - Drug interaction [Unknown]
  - Transient ischaemic attack [Unknown]
  - Paraesthesia [Recovered/Resolved]
  - Movement disorder [Recovered/Resolved]
  - Wrong technique in product usage process [Unknown]

NARRATIVE: CASE EVENT DATE: 201511
